FAERS Safety Report 20431216 (Version 1)
Quarter: 2022Q1

REPORT INFORMATION
  Report Type: Spontaneous
  Country: US (occurrence: US)
  Receive Date: 20220204
  Receipt Date: 20220204
  Transmission Date: 20220424
  Serious: No
  Sender: FDA-Public Use
  Company Number: US-PERRIGO-21US005333

PATIENT
  Age: 80 Year
  Sex: Female
  Weight: 54.422 kg

DRUGS (7)
  1. TRETINOIN [Suspect]
     Active Substance: TRETINOIN
     Indication: Skin wrinkling
     Dosage: SMALL AMOUNT, QD, PRN
     Route: 061
     Dates: start: 202102, end: 20210416
  2. TRETINOIN [Suspect]
     Active Substance: TRETINOIN
     Indication: Scar
  3. LORTAB [Concomitant]
     Active Substance: ACETAMINOPHEN\HYDROCODONE BITARTRATE
     Indication: Back pain
     Dosage: UNK, ON AND OFF
     Route: 065
     Dates: start: 2011
  4. VITAMIN C                          /00008001/ [Concomitant]
     Indication: Supplementation therapy
     Dosage: UNK
     Route: 065
     Dates: end: 202104
  5. EXCEDRIN                           /00110301/ [Concomitant]
     Indication: Migraine
     Dosage: UNK, PRN
     Route: 065
     Dates: start: 1991
  6. EXCEDRIN                           /00110301/ [Concomitant]
     Indication: Headache
  7. BIOTIN [Concomitant]
     Active Substance: BIOTIN
     Indication: Supplementation therapy
     Dosage: UNK, ON AND OFF
     Route: 065
     Dates: start: 2020, end: 202104

REACTIONS (1)
  - Drug ineffective for unapproved indication [Unknown]

NARRATIVE: CASE EVENT DATE: 20210201
